FAERS Safety Report 6766650-2 (Version None)
Quarter: 2010Q2

REPORT INFORMATION
  Report Type: 
  Country: None (occurrence: None)
  Receive Date: 20100611
  Receipt Date: 20100603
  Transmission Date: 20101027
  Serious: Yes (Other)
  Sender: FDA-Public Use
  Company Number: US-JNJCH-2010013546

PATIENT
  Sex: Female

DRUGS (1)
  1. PURELL ORIGINAL [Suspect]
     Indication: PROPHYLAXIS
     Dosage: TEXT:^SEVERAL TIMES^ A DAY
     Route: 061

REACTIONS (2)
  - BURNS SECOND DEGREE [None]
  - THERMAL BURN [None]
